FAERS Safety Report 18124340 (Version 1)
Quarter: 2020Q3

REPORT INFORMATION
  Report Type: Spontaneous
  Country: GB (occurrence: GB)
  Receive Date: 20200807
  Receipt Date: 20200807
  Transmission Date: 20201103
  Serious: Yes (Other)
  Sender: FDA-Public Use
  Company Number: GB-TEVA-2020-GB-1810190

PATIENT
  Age: 67 Year
  Sex: Male
  Weight: 84.36 kg

DRUGS (8)
  1. ROSUVASTATIN. [Suspect]
     Active Substance: ROSUVASTATIN
     Indication: BLOOD CHOLESTEROL INCREASED
     Dosage: 1 DOSAGE FORMS, INITIALLY 1 PER WEEK
     Route: 048
     Dates: start: 20200601, end: 20200704
  2. LANSOPRAZOLE. [Concomitant]
     Active Substance: LANSOPRAZOLE
  3. BISOPROLOL FUMARATE. [Concomitant]
     Active Substance: BISOPROLOL FUMARATE
  4. LEVOTHYROXINE SODIUM. [Concomitant]
     Active Substance: LEVOTHYROXINE SODIUM
  5. EZETIMIBE. [Concomitant]
     Active Substance: EZETIMIBE
  6. LATANOPROST. [Concomitant]
     Active Substance: LATANOPROST
  7. RAMIPRIL. [Concomitant]
     Active Substance: RAMIPRIL
  8. ACETYLSALICYLIC ACID [Concomitant]
     Active Substance: ASPIRIN

REACTIONS (5)
  - Depression [Unknown]
  - Fatigue [Recovered/Resolved with Sequelae]
  - Sleep disorder [Unknown]
  - Aggression [Recovered/Resolved]
  - Myalgia [Not Recovered/Not Resolved]

NARRATIVE: CASE EVENT DATE: 20200601
